FAERS Safety Report 15666402 (Version 3)
Quarter: 2019Q2

REPORT INFORMATION
  Report Type: Spontaneous
  Country: US (occurrence: US)
  Receive Date: 20181128
  Receipt Date: 20190507
  Transmission Date: 20190711
  Serious: No
  Sender: FDA-Public Use
  Company Number: US-ACTELION-A-US2016-129980

PATIENT
  Sex: Male

DRUGS (3)
  1. OPSUMIT [Suspect]
     Active Substance: MACITENTAN
     Indication: PULMONARY HYPERTENSION
     Dosage: 10 MG, QD
     Route: 048
     Dates: start: 20140501
  2. ADCIRCA [Concomitant]
     Active Substance: TADALAFIL
  3. CELEXA [Concomitant]
     Active Substance: CITALOPRAM HYDROBROMIDE

REACTIONS (11)
  - Generalised anxiety disorder [Unknown]
  - Nervousness [Unknown]
  - Insomnia [Unknown]
  - Pain [Unknown]
  - Headache [Unknown]
  - Cough [Not Recovered/Not Resolved]
  - Nausea [Unknown]
  - Nasopharyngitis [Unknown]
  - Nasal congestion [Unknown]
  - Sneezing [Unknown]
  - Viral infection [Unknown]
